FAERS Safety Report 10915665 (Version 2)
Quarter: 2015Q2

REPORT INFORMATION
  Report Type: Not Available
  Country: US (occurrence: US)
  Receive Date: 20150316
  Receipt Date: 20150427
  Transmission Date: 20150821
  Serious: Yes (Other)
  Sender: FDA-Public Use
  Company Number: US-LUPIN PHARMACEUTICALS INC.-E2B_00003270

PATIENT
  Age: 55 Year
  Sex: Female
  Weight: 74.91 kg

DRUGS (1)
  1. DULOXETINE DELAYED-RELEASE 30 MG CAPSULES USP [Suspect]
     Active Substance: DULOXETINE
     Indication: FIBROMYALGIA
     Dates: start: 20150220, end: 20150227

REACTIONS (9)
  - Head discomfort [Not Recovered/Not Resolved]
  - Nausea [Recovered/Resolved]
  - Urticaria [Recovering/Resolving]
  - Mouth swelling [Recovered/Resolved]
  - Pruritus [Recovering/Resolving]
  - Stomatitis [Not Recovered/Not Resolved]
  - Vomiting [Recovered/Resolved]
  - Abdominal discomfort [Not Recovered/Not Resolved]
  - Product use issue [Unknown]

NARRATIVE: CASE EVENT DATE: 20150220
